FAERS Safety Report 8836523 (Version 2)
Quarter: 2012Q4

REPORT INFORMATION
  Report Type: Spontaneous
  Country: US (occurrence: None)
  Receive Date: 20121009
  Receipt Date: 20121016
  Transmission Date: 20130627
  Serious: Yes (Death, Hospitalization)
  Sender: FDA-Public Use
  Company Number: 2012-0958

PATIENT
  Age: 76 Year
  Sex: Female

DRUGS (3)
  1. KYPROLIS [Suspect]
     Indication: MULTIPLE MYELOMA
     Route: 042
     Dates: start: 201208
  2. DEXAMETHASONE (DEXAMETHASONE) (DEXAMETHASONE) [Concomitant]
  3. THALIDOMIDE (THALIDOMIDE) (THALIDOMIDE) [Concomitant]

REACTIONS (6)
  - Asthenia [None]
  - Fall [None]
  - Subdural haematoma [None]
  - Fatigue [None]
  - Terminal state [None]
  - Headache [None]
